FAERS Safety Report 4849051-3 (Version None)
Quarter: 2005Q4

REPORT INFORMATION
  Report Type: 
  Country: None (occurrence: None)
  Receive Date: 20051209
  Receipt Date: 20051205
  Transmission Date: 20060501
  Serious: Yes (Other)
  Sender: FDA-Public Use
  Company Number: GB-BOEHRINGER INGELHEIM PHARMACEUTICALS, INC.-2005-UK-02536UK

PATIENT
  Age: 31 Year
  Sex: Female

DRUGS (3)
  1. VIRAMUNE TABLETS (00015/0215/A) [Suspect]
     Route: 048
  2. COMBIVIR [Suspect]
     Route: 048
  3. MEDICINALPRODUCT NOT SPECIFIED BY SENDER [Concomitant]

REACTIONS (2)
  - DRUG EXPOSURE DURING PREGNANCY [None]
  - STILLBIRTH [None]
